FAERS Safety Report 10257298 (Version 1)
Quarter: 2014Q2

REPORT INFORMATION
  Report Type: Spontaneous
  Country: US (occurrence: US)
  Receive Date: 20140625
  Receipt Date: 20140625
  Transmission Date: 20141212
  Serious: No
  Sender: FDA-Public Use
  Company Number: DE-ASTRAZENECA-2014SE46076

PATIENT
  Age: 40 Year
  Sex: Male

DRUGS (5)
  1. VIMOVO [Suspect]
     Indication: EPICONDYLITIS
     Route: 048
     Dates: start: 20140519
  2. KRILL OIL [Concomitant]
     Route: 065
  3. CLARITIN [Concomitant]
  4. JUICE PLUS FIBER NUTRITIONAL SUPPLEMENTS, PROBIOTIC [Concomitant]
  5. LYSINE HCL [Concomitant]

REACTIONS (4)
  - Vision blurred [Recovered/Resolved]
  - Dizziness [Recovered/Resolved]
  - Nausea [Recovered/Resolved]
  - Dyspnoea [Recovered/Resolved]
